FAERS Safety Report 13465271 (Version 3)
Quarter: 2017Q3

REPORT INFORMATION
  Report Type: Report from Study
  Country: US (occurrence: US)
  Receive Date: 20170421
  Receipt Date: 20170721
  Transmission Date: 20171127
  Serious: Yes (Other)
  Sender: FDA-Public Use
  Company Number: US-AMGEN-USASL2017058267

PATIENT
  Age: 85 Year
  Sex: Female

DRUGS (8)
  1. ZOLOFT [Concomitant]
     Active Substance: SERTRALINE HYDROCHLORIDE
     Dosage: 50 MG, UNK
  2. CALCIUM + D3 [Concomitant]
     Active Substance: CALCIUM\CHOLECALCIFEROL
     Dosage: 600 MG/200 UNIT, UNK
  3. INFLUENZA VACCINE [Concomitant]
     Active Substance: INFLUENZA VIRUS VACCINE
     Route: 030
  4. VITAMIN B12 [Concomitant]
     Active Substance: CYANOCOBALAMIN
     Dosage: 1000 MUG, UNK
  5. ZOSTER IMMUNOGLOBULIN [Concomitant]
     Active Substance: HUMAN VARICELLA-ZOSTER IMMUNE GLOBULIN
  6. PROLIA [Suspect]
     Active Substance: DENOSUMAB
     Indication: BONE DISORDER
     Dosage: 60 MG/ML, Q6MO
     Route: 058
  7. TD [Concomitant]
     Active Substance: CLOSTRIDIUM TETANI TOXOID ANTIGEN (FORMALDEHYDE INACTIVATED)\CORYNEBACTERIUM DIPHTHERIAE TOXOID ANTIGEN (FORMALDEHYDE INACTIVATED)
  8. PNEUMOVAX 23 [Concomitant]
     Active Substance: PNEUMOCOCCAL VACCINE, POLYVALENT 23
     Dosage: UNK
     Dates: start: 20050930

REACTIONS (8)
  - Gastrointestinal tract adenoma [Unknown]
  - Major depression [Unknown]
  - Vitamin D deficiency [Unknown]
  - Rhinitis allergic [Unknown]
  - Chronic kidney disease [Unknown]
  - Vitamin B12 deficiency [Unknown]
  - Off label use [Unknown]
  - Rosacea [Unknown]
